FAERS Safety Report 8297129-7 (Version None)
Quarter: 2012Q2

REPORT INFORMATION
  Report Type: 
  Country: None (occurrence: None)
  Receive Date: 20120419
  Receipt Date: 20120417
  Transmission Date: 20120825
  Serious: No
  Sender: FDA-Public Use
  Company Number: US-PFIZER INC-2012095653

PATIENT
  Sex: Female
  Weight: 76 kg

DRUGS (1)
  1. SPIRONOLACTONE [Suspect]
     Indication: BLOOD PRESSURE ABNORMAL
     Dosage: UNK
     Dates: start: 20090101, end: 20120416

REACTIONS (1)
  - DIARRHOEA [None]
